FAERS Safety Report 17169092 (Version 1)
Quarter: 2019Q4

REPORT INFORMATION
  Report Type: Spontaneous
  Country: BR (occurrence: BR)
  Receive Date: 20191218
  Receipt Date: 20191218
  Transmission Date: 20200122
  Serious: Yes (Other)
  Sender: FDA-Public Use
  Company Number: BR-ELI_LILLY_AND_COMPANY-BR201912003818

PATIENT
  Age: 72 Year
  Sex: Male
  Weight: 74 kg

DRUGS (5)
  1. LARTRUVO [Suspect]
     Active Substance: OLARATUMAB
     Indication: MALIGNANT PERITONEAL NEOPLASM
  2. BENICAR [Concomitant]
     Active Substance: OLMESARTAN MEDOXOMIL
     Dosage: UNK UNK, DAILY
     Route: 048
     Dates: start: 20180924
  3. LARTRUVO [Suspect]
     Active Substance: OLARATUMAB
     Indication: RETROPERITONEAL CANCER
     Dosage: 989.3 MG, CYCLICAL
     Route: 042
     Dates: start: 20180924
  4. ROSUVASTATIN. [Concomitant]
     Active Substance: ROSUVASTATIN
     Dosage: 20 MG, DAILY
     Route: 048
  5. PURAN [Concomitant]
     Active Substance: LEVOTHYROXINE SODIUM
     Dosage: 122 UG, EACH MORNING
     Route: 048

REACTIONS (1)
  - Sinus bradycardia [Recovered/Resolved]

NARRATIVE: CASE EVENT DATE: 201910
